FAERS Safety Report 9499862 (Version 1)
Quarter: 2013Q3

REPORT INFORMATION
  Report Type: Spontaneous
  Country: US (occurrence: None)
  Receive Date: 20130904
  Receipt Date: 20130904
  Transmission Date: 20140515
  Serious: Yes (Other)
  Sender: FDA-Public Use
  Company Number: None

PATIENT
  Age: 31 Year
  Sex: Female

DRUGS (1)
  1. PROGESTERONE [Suspect]
     Indication: INFERTILITY
     Route: 030

REACTIONS (3)
  - Pyrexia [None]
  - Injection site pain [None]
  - Cellulitis [None]
